FAERS Safety Report 22299528 (Version 1)
Quarter: 2023Q2

REPORT INFORMATION
  Report Type: Spontaneous
  Country: US (occurrence: None)
  Receive Date: 20230508
  Receipt Date: 20230508
  Transmission Date: 20230721
  Serious: No
  Sender: FDA-Public Use
  Company Number: None

PATIENT
  Age: 66 Year
  Sex: Female
  Weight: 68.49 kg

DRUGS (26)
  1. JAYPIRCA [Suspect]
     Active Substance: PIRTOBRUTINIB
     Indication: Mantle cell lymphoma
     Dosage: 200 ONCE DAILY ORAL
     Route: 048
  2. ARMOUR THYROID [Concomitant]
  3. AZITHROMYCIN [Concomitant]
     Active Substance: AZITHROMYCIN
  4. BIOTIN [Concomitant]
     Active Substance: BIOTIN
  5. BONIVA [Concomitant]
     Active Substance: IBANDRONATE SODIUM
  6. BOTOX [Concomitant]
     Active Substance: ONABOTULINUMTOXINA
  7. CALCIUM [Concomitant]
     Active Substance: CALCIUM
  8. CORTISONE CREAM [Concomitant]
  9. FARESTON [Concomitant]
     Active Substance: TOREMIFENE CITRATE
  10. FISH OIL [Concomitant]
     Active Substance: FISH OIL
  11. FLUTICASONE [Concomitant]
     Active Substance: FLUTICASONE
  12. GUAIFENESIN [Concomitant]
     Active Substance: GUAIFENESIN
  13. HYALURONIC ACID [Concomitant]
  14. INDOLE-3-CARBINOL POWDER [Concomitant]
  15. MAGNESIUM CITRATE [Concomitant]
  16. METRONIDAZOLE [Concomitant]
     Active Substance: METRONIDAZOLE
  17. VITAMINS [Concomitant]
     Active Substance: VITAMINS
  18. NIACIN [Concomitant]
     Active Substance: NIACIN
  19. PREDNISONE [Concomitant]
     Active Substance: PREDNISONE
  20. CODEINE PHOSPHATE\PROMETHAZINE [Concomitant]
     Active Substance: CODEINE PHOSPHATE\PROMETHAZINE
  21. RESERVAROL [Concomitant]
  22. POLYLACTIDE, L- [Concomitant]
     Active Substance: POLYLACTIDE, L-
  23. SELENIUM [Concomitant]
     Active Substance: SELENIUM
  24. VITAMIN D3 [Concomitant]
  25. TUMERIC [Concomitant]
  26. VIVISCALE [Concomitant]

REACTIONS (1)
  - Drug ineffective [None]
